FAERS Safety Report 4893470-6 (Version None)
Quarter: 2006Q1

REPORT INFORMATION
  Report Type: 
  Country: None (occurrence: None)
  Receive Date: 20060127
  Receipt Date: 20050331
  Transmission Date: 20060701
  Serious: No
  Sender: FDA-Public Use
  Company Number: US-BRISTOL-MYERS SQUIBB COMPANY-12917084

PATIENT
  Age: 61 Year
  Sex: Female
  Weight: 61 kg

DRUGS (1)
  1. KENALOG [Suspect]
     Indication: VIRAL INFECTION
     Dates: start: 20050301, end: 20050301

REACTIONS (1)
  - POSTMENOPAUSAL HAEMORRHAGE [None]
